FAERS Safety Report 9846350 (Version 1)
Quarter: 2013Q4

REPORT INFORMATION
  Report Type: Spontaneous
  Country: US (occurrence: None)
  Receive Date: 20131223
  Receipt Date: 20131223
  Transmission Date: 20140711
  Serious: No
  Sender: FDA-Public Use
  Company Number: CABO-13003315

PATIENT
  Age: 42 Year
  Sex: Female

DRUGS (6)
  1. COMETRIQ (CABOZANTINIB) CAPSULE [Suspect]
     Indication: NEUROENDOCRINE TUMOUR
     Route: 048
     Dates: start: 20130907, end: 20131007
  2. SYNTHROID (LEVOTHYROXINE SODIUM) [Concomitant]
  3. CELEXA (CITALOPRAM HYDROBROMIDE) [Concomitant]
  4. VAGIFEM ESTRADIOL) [Concomitant]
  5. CITALOPRAM (CITALOPRAM HYDROCHLORIDE) [Concomitant]
  6. OTHER MINERAL SUPPLEMENTS [Concomitant]

REACTIONS (13)
  - Dry mouth [None]
  - Tongue dry [None]
  - Nasal dryness [None]
  - Tonsillitis [None]
  - Dysuria [None]
  - Nausea [None]
  - Oral pain [None]
  - Glossodynia [None]
  - Dyspepsia [None]
  - Erythema [None]
  - Stomatitis [None]
  - Blister [None]
  - Dysgeusia [None]
